FAERS Safety Report 17005704 (Version 1)
Quarter: 2019Q4

REPORT INFORMATION
  Report Type: Spontaneous
  Country: US (occurrence: US)
  Receive Date: 20191106
  Receipt Date: 20191106
  Transmission Date: 20200122
  Serious: Yes (Other)
  Sender: FDA-Public Use
  Company Number: None

PATIENT
  Age: 29 Year
  Sex: Female
  Weight: 51.75 kg

DRUGS (1)
  1. DOANS EXTRA STRENGTH [Suspect]
     Active Substance: MAGNESIUM SALICYLATE
     Indication: BACK PAIN
     Dosage: ?          QUANTITY:2 TABLET(S);?
     Route: 048
     Dates: start: 20191029, end: 20191105

REACTIONS (7)
  - Diarrhoea [None]
  - Nausea [None]
  - Somnolence [None]
  - Cold sweat [None]
  - Abdominal discomfort [None]
  - Abdominal pain upper [None]
  - Feeling cold [None]

NARRATIVE: CASE EVENT DATE: 20191029
